FAERS Safety Report 5470082-7 (Version None)
Quarter: 2007Q3

REPORT INFORMATION
  Report Type: 
  Country: None (occurrence: None)
  Receive Date: 20070927
  Receipt Date: 20070916
  Transmission Date: 20080115
  Serious: Yes (Hospitalization, Other)
  Sender: FDA-Public Use
  Company Number: HQWYE340327SEP07

PATIENT
  Sex: Male
  Weight: 77 kg

DRUGS (8)
  1. RAPAMUNE [Suspect]
     Indication: PROPHYLAXIS AGAINST TRANSPLANT REJECTION
     Route: 048
     Dates: start: 20061113, end: 20070917
  2. RAPAMUNE [Suspect]
     Route: 048
     Dates: start: 20070918
  3. CALCITRIOL [Concomitant]
     Indication: PROPHYLAXIS
     Dosage: UNSPECIFIED
     Dates: start: 20061112
  4. RANITIDINE HCL [Concomitant]
     Indication: PROPHYLAXIS AGAINST GASTROINTESTINAL ULCER
     Route: 048
     Dates: start: 20061112
  5. ACYCLOVIR [Concomitant]
     Indication: PROPHYLAXIS
     Route: 048
     Dates: start: 20061112
  6. CELLCEPT [Concomitant]
     Indication: PROPHYLAXIS AGAINST TRANSPLANT REJECTION
     Dosage: UNSPECIFIED
     Dates: end: 20070901
  7. CELLCEPT [Concomitant]
     Dosage: 500 MG (FREQUENCY UNSPECIFIED)
     Dates: start: 20070901
  8. CONTRIMOXAZOLE [Concomitant]
     Indication: ANTIBIOTIC PROPHYLAXIS
     Dosage: UNSPECIFIED
     Route: 048
     Dates: start: 20061118

REACTIONS (2)
  - ANAEMIA [None]
  - PULMONARY OEDEMA [None]
